FAERS Safety Report 12553304 (Version 5)
Quarter: 2023Q2

REPORT INFORMATION
  Report Type: Spontaneous
  Country: US (occurrence: US)
  Receive Date: 20160713
  Receipt Date: 20230628
  Transmission Date: 20230721
  Serious: No
  Sender: FDA-Public Use
  Company Number: US-PFIZER INC-2016332838

PATIENT
  Age: 68 Year
  Sex: Male

DRUGS (2)
  1. ELELYSO [Suspect]
     Active Substance: TALIGLUCERASE ALFA
     Dosage: 60 IU/KG
  2. ELELYSO [Suspect]
     Active Substance: TALIGLUCERASE ALFA
     Dosage: 90 IU/KG, 2X/WEEK (EVERY 2 WEEKS)
     Dates: start: 202301

REACTIONS (3)
  - Fatigue [Unknown]
  - Memory impairment [Unknown]
  - Prescribed overdose [Unknown]
